FAERS Safety Report 8428926 (Version 2)
Quarter: 2016Q4

REPORT INFORMATION
  Report Type: Spontaneous
  Country: US (occurrence: US)
  Receive Date: 20120227
  Receipt Date: 20161220
  Transmission Date: 20170207
  Serious: Yes (Other)
  Sender: FDA-Public Use
  Company Number: US-ROCHE-1011897

PATIENT
  Sex: Male

DRUGS (1)
  1. ZELBORAF [Suspect]
     Active Substance: VEMURAFENIB
     Indication: PRODUCT USED FOR UNKNOWN INDICATION
     Route: 065

REACTIONS (9)
  - Sunburn [Unknown]
  - Fatigue [Unknown]
  - Rash [Unknown]
  - Skin papilloma [Unknown]
  - Mass [Unknown]
  - Pruritus [Unknown]
  - Disease progression [Unknown]
  - Alopecia [Unknown]
  - Melanocytic naevus [Unknown]
